FAERS Safety Report 8610791 (Version 3)
Quarter: 2012Q4

REPORT INFORMATION
  Report Type: 
  Country: US (occurrence: US)
  Receive Date: 20120612
  Receipt Date: 20121121
  Transmission Date: 20130627
  Serious: Yes (Other)
  Sender: FDA-Public Use
  Company Number: US-ELI_LILLY_AND_COMPANY-US201206001648

PATIENT
  Age: 44 Year
  Sex: Female
  Weight: 52.15 kg

DRUGS (2)
  1. CYMBALTA [Suspect]
     Indication: FIBROMYALGIA
     Dosage: 30 mg, qd
     Route: 048
     Dates: start: 20120525, end: 20120525
  2. LEVOXYL [Concomitant]
     Dosage: 67.5 ug, qd

REACTIONS (9)
  - Loss of consciousness [Recovered/Resolved]
  - Dyspnoea [Recovered/Resolved]
  - Chills [Recovered/Resolved]
  - Fatigue [Recovered/Resolved]
  - Nausea [Recovered/Resolved]
  - Malaise [Recovered/Resolved]
  - Cold sweat [Recovered/Resolved]
  - Fear [Recovered/Resolved]
  - Palpitations [Recovered/Resolved]
